FAERS Safety Report 25280082 (Version 5)
Quarter: 2025Q4

REPORT INFORMATION
  Report Type: Spontaneous
  Country: US (occurrence: US)
  Receive Date: 20250507
  Receipt Date: 20251211
  Transmission Date: 20260119
  Serious: No
  Sender: BIOGEN
  Company Number: US-BIOGEN-2025BI01309503

PATIENT
  Age: 34 Year
  Sex: Male

DRUGS (2)
  1. SKYCLARYS [Suspect]
     Active Substance: OMAVELOXOLONE
     Indication: Friedreich^s ataxia
     Dates: start: 20240626, end: 20250223
  2. SKYCLARYS [Suspect]
     Active Substance: OMAVELOXOLONE
     Dosage: DOSAGE TEXT:150 MG DAILY
     Dates: start: 20231204

REACTIONS (2)
  - Blood iron decreased [Unknown]
  - Hepatic enzyme increased [Unknown]

NARRATIVE: CASE EVENT DATE: 20250201
